FAERS Safety Report 11793830 (Version 1)
Quarter: 2015Q4

REPORT INFORMATION
  Report Type: Spontaneous
  Country: US (occurrence: None)
  Receive Date: 20151201
  Receipt Date: 20151201
  Transmission Date: 20160305
  Serious: Yes (Life-Threatening, Disabling, Other)
  Sender: FDA-Public Use
  Company Number: None

PATIENT
  Age: 33 Year
  Sex: Female
  Weight: 48.99 kg

DRUGS (9)
  1. CLONAZEPAM. [Concomitant]
     Active Substance: CLONAZEPAM
  2. TRIPHALA [Concomitant]
  3. YOGARAJ GUGGULU [Concomitant]
  4. ATIVAN [Suspect]
     Active Substance: LORAZEPAM
     Indication: ANXIETY
     Route: 048
     Dates: start: 20131101, end: 20151123
  5. VITAMIN D [Concomitant]
     Active Substance: CHOLECALCIFEROL
  6. METHOLATED FOLATE (B COMPLEX) [Concomitant]
  7. ATIVAN [Suspect]
     Active Substance: LORAZEPAM
     Indication: BIPOLAR DISORDER
     Route: 048
     Dates: start: 20131101, end: 20151123
  8. ASHWAGANDHA [Concomitant]
     Active Substance: HERBALS
  9. TRAMADOL. [Concomitant]
     Active Substance: TRAMADOL

REACTIONS (10)
  - Local swelling [None]
  - Pain in jaw [None]
  - Oral pain [None]
  - Hypoaesthesia [None]
  - Eating disorder [None]
  - Pain [None]
  - Muscle twitching [None]
  - Bruxism [None]
  - Dysarthria [None]
  - Lip swelling [None]

NARRATIVE: CASE EVENT DATE: 20151130
